FAERS Safety Report 4698107-7 (Version None)
Quarter: 2005Q2

REPORT INFORMATION
  Report Type: 
  Country: None (occurrence: None)
  Receive Date: 20050621
  Receipt Date: 20050609
  Transmission Date: 20051028
  Serious: Yes (Hospitalization)
  Sender: FDA-Public Use
  Company Number: 2005087406

PATIENT
  Age: 62 Year
  Sex: Male

DRUGS (8)
  1. ACCUPRIL [Suspect]
     Indication: ESSENTIAL HYPERTENSION
     Dosage: 20 MG (20 MG, DAILY INTERVAL: EVERY DAY), ORAL
     Route: 048
  2. CO-BETALOC (HYDROCHLOROTHIAZIDE, METOPROLOL TARTRATE) [Suspect]
     Indication: ESSENTIAL HYPERTENSION
     Dosage: (2 MG), INTRAVENOUS
     Route: 042
  3. VERAPAMIL [Suspect]
     Indication: ESSENTIAL HYPERTENSION
     Dosage: 240 MG (240 MG, DAILY INTERVAL: EVERY DAY),
  4. ERYTHROMYCIN [Concomitant]
  5. LIPITOR [Concomitant]
  6. NU-SEALS (ACETYLSALICYLIC ACID) [Concomitant]
  7. PROTIUM (PANTOPRAZOLE SODIUM) [Concomitant]
  8. MORPHINE SULFATE [Concomitant]

REACTIONS (4)
  - ANURIA [None]
  - ATRIOVENTRICULAR BLOCK [None]
  - BRADYCARDIA [None]
  - HYPOTENSION [None]
